FAERS Safety Report 6497720-4 (Version None)
Quarter: 2009Q4

REPORT INFORMATION
  Report Type: 
  Country: None (occurrence: None)
  Receive Date: 20091125
  Receipt Date: 20090325
  Transmission Date: 20100525
  Serious: Yes (Other)
  Sender: FDA-Public Use
  Company Number: 2009BH002270

PATIENT
  Age: 55 Year
  Sex: Female

DRUGS (11)
  1. DIANEAL [Suspect]
     Indication: RENAL FAILURE CHRONIC
     Dosage: EVERY DAY; IP
     Route: 033
     Dates: start: 20071004
  2. DIANEAL [Suspect]
     Indication: RENAL FAILURE CHRONIC
     Dosage: EVERY DAY; IP
     Route: 033
     Dates: start: 20071004
  3. PERCOCET [Concomitant]
  4. ZEMPLAR [Concomitant]
  5. NIACIN [Concomitant]
  6. FOSRENOL [Concomitant]
  7. LUNESTA [Concomitant]
  8. TUMS [Concomitant]
  9. OMEGA FISH OIL [Concomitant]
  10. RENA VITE [Concomitant]
  11. VITAMIN C [Concomitant]

REACTIONS (3)
  - DIARRHOEA [None]
  - PERITONITIS BACTERIAL [None]
  - PROCEDURAL PAIN [None]
